FAERS Safety Report 7096391-6 (Version None)
Quarter: 2010Q4

REPORT INFORMATION
  Report Type: 
  Country: None (occurrence: None)
  Receive Date: 20101111
  Receipt Date: 20101103
  Transmission Date: 20110411
  Serious: Yes (Other)
  Sender: FDA-Public Use
  Company Number: CA-JNJFOC-20101101992

PATIENT
  Sex: Female
  Weight: 99 kg

DRUGS (8)
  1. REMICADE [Suspect]
     Indication: COLITIS ULCERATIVE
     Dosage: 14TH INFUSION
     Route: 042
  2. REMICADE [Suspect]
     Dosage: 13TH INFUSION
     Route: 042
  3. SULFASALAZINE [Concomitant]
     Dosage: 6-8 TABS DAILY
     Route: 048
  4. YASMIN [Concomitant]
  5. IMURAN [Concomitant]
     Route: 048
  6. EFFEXOR [Concomitant]
  7. PERCOCET [Concomitant]
  8. BENADRYL [Concomitant]
     Indication: PREMEDICATION
     Dosage: 5 DAYS PRIOR TO INFUSION

REACTIONS (10)
  - HYPOTENSION [None]
  - INFUSION RELATED REACTION [None]
  - NASOPHARYNGITIS [None]
  - NAUSEA [None]
  - PALLOR [None]
  - PRODUCTIVE COUGH [None]
  - PRURITUS [None]
  - THROAT TIGHTNESS [None]
  - URTICARIA [None]
  - VOMITING [None]
